FAERS Safety Report 6804157-4 (Version None)
Quarter: 2010Q2

REPORT INFORMATION
  Report Type: 
  Country: None (occurrence: None)
  Receive Date: 20100628
  Receipt Date: 20070303
  Transmission Date: 20101027
  Serious: Yes (Other)
  Sender: FDA-Public Use
  Company Number: US-PFIZER INC-2003035882

PATIENT
  Sex: Male
  Weight: 86.2 kg

DRUGS (5)
  1. GEODON [Suspect]
     Indication: AGITATION
     Dosage: BID: EVERYDAY
     Route: 048
     Dates: start: 20020101
  2. GEODON [Suspect]
     Indication: AUTISM
  3. GEODON [Suspect]
     Indication: ANXIETY
  4. GEODON [Suspect]
     Indication: AGGRESSION
  5. TEGRETOL [Concomitant]

REACTIONS (7)
  - DRUG INEFFECTIVE [None]
  - FATIGUE [None]
  - HYPERSENSITIVITY [None]
  - IRRITABILITY [None]
  - RASH [None]
  - SOMNOLENCE [None]
  - URTICARIA [None]
